FAERS Safety Report 9501459 (Version 1)
Quarter: 2013Q3

REPORT INFORMATION
  Report Type: Spontaneous
  Country: FR (occurrence: FR)
  Receive Date: 20130905
  Receipt Date: 20130905
  Transmission Date: 20140515
  Serious: Yes (Hospitalization)
  Sender: FDA-Public Use
  Company Number: FR-GLAXOSMITHKLINE-B0918329A

PATIENT
  Age: 90 Year
  Sex: Male

DRUGS (12)
  1. DEROXAT [Suspect]
     Indication: PRODUCT USED FOR UNKNOWN INDICATION
     Dosage: 20MG PER DAY
     Route: 048
     Dates: end: 20130619
  2. LASILIX [Suspect]
     Indication: CARDIAC FAILURE
     Dosage: 290MG PER DAY
     Route: 048
     Dates: start: 201306, end: 20130619
  3. IKOREL [Suspect]
     Indication: PRODUCT USED FOR UNKNOWN INDICATION
     Dosage: 20MG TWICE PER DAY
     Route: 048
     Dates: end: 20130621
  4. MODOPAR [Suspect]
     Indication: PRODUCT USED FOR UNKNOWN INDICATION
     Route: 048
     Dates: end: 20130621
  5. XATRAL [Concomitant]
     Indication: PROSTATIC ADENOMA
     Dosage: 10MG PER DAY
     Route: 048
  6. PROCORALAN [Concomitant]
     Indication: PRODUCT USED FOR UNKNOWN INDICATION
     Dosage: 7.5MG TWICE PER DAY
     Route: 048
  7. INEXIUM [Concomitant]
     Indication: PRODUCT USED FOR UNKNOWN INDICATION
     Dosage: 20MG PER DAY
     Route: 048
  8. CRESTOR [Concomitant]
     Indication: CARDIOVASCULAR EVENT PROPHYLAXIS
     Dosage: 5MG PER DAY
     Route: 048
  9. CHIBRO-PROSCAR [Concomitant]
     Indication: PROSTATIC ADENOMA
     Dosage: 5MG PER DAY
     Route: 048
  10. PLAVIX [Concomitant]
     Indication: CARDIOVASCULAR EVENT PROPHYLAXIS
     Dosage: 75MG PER DAY
     Route: 048
  11. DISCOTRINE [Concomitant]
     Indication: PRODUCT USED FOR UNKNOWN INDICATION
     Dosage: 10MG PER DAY
     Route: 062
  12. FUCIDINE [Concomitant]
     Indication: PRODUCT USED FOR UNKNOWN INDICATION
     Route: 065
     Dates: start: 201306, end: 201306

REACTIONS (8)
  - General physical health deterioration [Recovered/Resolved]
  - Blood creatinine increased [Recovered/Resolved]
  - Renal failure [Recovered/Resolved]
  - Abnormal behaviour [Recovered/Resolved]
  - Gait disturbance [Recovered/Resolved]
  - Hypotension [Recovered/Resolved]
  - Dehydration [Recovered/Resolved]
  - Normochromic normocytic anaemia [Unknown]
